FAERS Safety Report 14912957 (Version 2)
Quarter: 2018Q2

REPORT INFORMATION
  Report Type: Report from Study
  Country: FI (occurrence: FI)
  Receive Date: 20180518
  Receipt Date: 20180528
  Transmission Date: 20180711
  Serious: Yes (Other)
  Sender: FDA-Public Use
  Company Number: FI-MYLANLABS-2018M1033231

PATIENT
  Age: 67 Year
  Sex: Male

DRUGS (1)
  1. LEPONEX [Suspect]
     Active Substance: CLOZAPINE
     Indication: PRODUCT USED FOR UNKNOWN INDICATION
     Dosage: 200 MG, QD
     Dates: end: 20180404

REACTIONS (7)
  - Dysphagia [Unknown]
  - Pneumonia aspiration [Recovered/Resolved]
  - Mental impairment [Unknown]
  - Neutropenia [Recovered/Resolved]
  - Aspiration [Unknown]
  - Catatonia [Unknown]
  - White blood cell count decreased [Unknown]

NARRATIVE: CASE EVENT DATE: 2018
